FAERS Safety Report 15989195 (Version 1)
Quarter: 2019Q1

REPORT INFORMATION
  Report Type: Spontaneous
  Country: US (occurrence: US)
  Receive Date: 20190220
  Receipt Date: 20190220
  Transmission Date: 20190418
  Serious: Yes (Life-Threatening, Hospitalization, Disabling)
  Sender: FDA-Public Use
  Company Number: None

PATIENT
  Age: 53 Year
  Sex: Female
  Weight: 51.75 kg

DRUGS (13)
  1. ISOMEPETENE [Concomitant]
  2. EXCEDRIN MIGRAINE [Concomitant]
     Active Substance: ACETAMINOPHEN\ASPIRIN\CAFFEINE
  3. AIMOVIG [Concomitant]
     Active Substance: ERENUMAB-AOOE
  4. ESTRADIOL. [Concomitant]
     Active Substance: ESTRADIOL
  5. PROGESTRONE [Concomitant]
  6. SUMITRIPTAN 100MG TAB AUROB [Suspect]
     Active Substance: SUMATRIPTAN
     Indication: MIGRAINE
     Route: 048
     Dates: start: 20100101
  7. ESCITALOPRAM [Concomitant]
     Active Substance: ESCITALOPRAM OXALATE
  8. ATORVISTATIN [Concomitant]
  9. CLOPIDOGREL [Concomitant]
     Active Substance: CLOPIDOGREL BISULFATE
  10. HYDROXYZINE [Concomitant]
     Active Substance: HYDROXYZINE HYDROCHLORIDE
  11. METOPROLOL. [Concomitant]
     Active Substance: METOPROLOL
  12. DEPAKOTE [Concomitant]
     Active Substance: DIVALPROEX SODIUM
  13. FIORINAL [Concomitant]
     Active Substance: ASPIRIN\BUTALBITAL\CAFFEINE

REACTIONS (5)
  - Cardiac arrest [None]
  - Migraine [None]
  - Dizziness [None]
  - Post-traumatic stress disorder [None]
  - Impaired work ability [None]

NARRATIVE: CASE EVENT DATE: 20180521
